FAERS Safety Report 4928222-1 (Version None)
Quarter: 2006Q1

REPORT INFORMATION
  Report Type: 
  Country: None (occurrence: None)
  Receive Date: 20060127
  Receipt Date: 20051213
  Transmission Date: 20060701
  Serious: Yes (Other)
  Sender: FDA-Public Use
  Company Number: 2005168391

PATIENT
  Age: 80 Year
  Sex: Male
  Weight: 72.5755 kg

DRUGS (6)
  1. LYRICA [Suspect]
     Indication: POST HERPETIC NEURALGIA
     Dosage: 150 MG (50 MG, 3 IN 1 D)
     Dates: start: 20051101
  2. GABAPENTIN [Concomitant]
  3. PROSCAR [Concomitant]
  4. HYTRIN [Concomitant]
  5. ALL OTHER THERAPEUTIC PRODUCTS (ALL OTHER THERAPEUTIC PRODUCTS) [Concomitant]
  6. ASPIRIN [Concomitant]

REACTIONS (1)
  - HYPOAESTHESIA [None]
